FAERS Safety Report 20569814 (Version 1)
Quarter: 2022Q1

REPORT INFORMATION
  Report Type: Spontaneous
  Country: GB (occurrence: GB)
  Receive Date: 20220309
  Receipt Date: 20220309
  Transmission Date: 20220424
  Serious: Yes (Hospitalization, Other)
  Sender: FDA-Public Use
  Company Number: GB-NOVARTISPH-NVSC2021GB250630

PATIENT
  Age: 40 Year
  Sex: Female

DRUGS (25)
  1. TRASTUZUMAB [Suspect]
     Active Substance: TRASTUZUMAB
     Indication: Breast cancer metastatic
     Dosage: 651 MG, Q3W , LOADING DOSEPLANNED NUMBER OF CYCLES COMPLETED (PHARMACEUTICAL DOSE FORM:459.04)
     Route: 041
     Dates: start: 20160323, end: 20160323
  2. TRASTUZUMAB [Suspect]
     Active Substance: TRASTUZUMAB
     Dosage: 651 MG, Q3W, LOADING DOSEPLANNED NUMBER OF CYCLES COMPLETED (PHARMACEUTICAL DOSE FORM:230)
     Route: 041
     Dates: start: 20160323, end: 20160323
  3. TRASTUZUMAB [Suspect]
     Active Substance: TRASTUZUMAB
     Dosage: 651 MG, Q3W , EVERY 3 WEEKS, LOADING DOSEPLANNED NUMBER OF CYCLES COMPLETED
     Route: 041
     Dates: start: 20160323, end: 20160323
  4. TRASTUZUMAB [Suspect]
     Active Substance: TRASTUZUMAB
     Dosage: 651 MG, Q3W EVERY 3 WEEKS, LOADING DOSEPLANNED NUMBER OF CYCLES COMPLETED (PHARMACEUTICAL DOSE FORM:
     Route: 041
     Dates: start: 20160323, end: 20160323
  5. TRASTUZUMAB [Suspect]
     Active Substance: TRASTUZUMAB
     Dosage: 483 MG, CYCLIC, (420 MG EVERY 3 WEEKS)
     Route: 042
     Dates: start: 20160413
  6. TRASTUZUMAB [Suspect]
     Active Substance: TRASTUZUMAB
     Dosage: 483 MG, CYCLIC, (420 MG EVERY 3 WEEKS) CUMULATIVE DOSE TO FIRST REACTION: 459.042MG
     Route: 042
     Dates: start: 20160413
  7. TRASTUZUMAB [Suspect]
     Active Substance: TRASTUZUMAB
     Dosage: 483 MG, Q3W
     Route: 042
     Dates: start: 20160413
  8. DOCETAXEL [Suspect]
     Active Substance: DOCETAXEL
     Indication: Breast cancer metastatic
     Dosage: 140 MG, CYCLIC (ONCE IN 2 WEEKS)
     Route: 042
     Dates: start: 20160324, end: 20160526
  9. DOCETAXEL [Suspect]
     Active Substance: DOCETAXEL
     Dosage: 140 MG, Q2W
     Route: 042
     Dates: start: 20160324, end: 20160526
  10. DOCETAXEL [Suspect]
     Active Substance: DOCETAXEL
     Dosage: 110 MG, CYCLIC EVERY 2 WEEKS (THERAPY DISCONTINUED: PLANNED NUMBER OF CYCLES COMPLETED)
     Route: 042
     Dates: start: 20160526, end: 20160707
  11. TAMOXIFEN [Suspect]
     Active Substance: TAMOXIFEN
     Indication: Breast cancer metastatic
     Dosage: 1 DOSAGE FORM, QD
     Route: 048
     Dates: start: 201603
  12. CITALOPRAM [Concomitant]
     Active Substance: CITALOPRAM HYDROBROMIDE
     Indication: Thrombosis prophylaxis
     Dosage: 20 MG, QD (20 MG, 1X/DAY) (PHARMACEUTICAL DOSE FORM :245)
     Route: 048
     Dates: start: 201003
  13. DALTEPARIN [Concomitant]
     Active Substance: DALTEPARIN
     Indication: Thrombosis prophylaxis
     Dosage: 5000 IU, QD (5000 IU, 1X/DAY)
     Route: 058
     Dates: start: 20160802, end: 20160809
  14. DALTEPARIN [Concomitant]
     Active Substance: DALTEPARIN
     Dosage: UNK IU
     Route: 065
  15. DENOSUMAB [Concomitant]
     Active Substance: DENOSUMAB
     Indication: Metastases to bone
     Dosage: 120 MG EVERY 28 DAYS
     Route: 058
     Dates: start: 20160323
  16. DENOSUMAB [Concomitant]
     Active Substance: DENOSUMAB
     Indication: Breast cancer metastatic
     Dosage: 120 MG
     Route: 065
  17. DENOSUMAB [Concomitant]
     Active Substance: DENOSUMAB
     Dosage: 120 MG, QMO
     Route: 058
     Dates: start: 20160323
  18. DENOSUMAB [Concomitant]
     Active Substance: DENOSUMAB
     Dosage: UNK
     Route: 065
  19. DEXAMETHASONE [Concomitant]
     Active Substance: DEXAMETHASONE
     Indication: Metastases to bone
     Dosage: 20 MG, TIW (CUMULATIVE DOSE TO FIRST REACTION: 0.95238096 MG)
     Route: 042
     Dates: start: 20160324
  20. DEXAMETHASONE [Concomitant]
     Active Substance: DEXAMETHASONE
     Indication: Breast cancer metastatic
     Dosage: UNK
     Route: 065
  21. DEXAMETHASONE [Concomitant]
     Active Substance: DEXAMETHASONE
     Dosage: 6 MG, TIW
     Route: 042
     Dates: start: 20191113
  22. OMEPRAZOLE [Concomitant]
     Active Substance: OMEPRAZOLE
     Indication: Dyspepsia
     Dosage: 20 MG, 1X/DAY (PHARMACEUTICAL DOSE FORM: 245)
     Route: 048
     Dates: start: 20170727
  23. OMEPRAZOLE [Concomitant]
     Active Substance: OMEPRAZOLE
     Dosage: UNK (DOSE FORM: 245)
     Route: 065
  24. OMEPRAZOLE [Concomitant]
     Active Substance: OMEPRAZOLE
     Dosage: UNK
     Route: 065
  25. ACETAMINOPHEN [Concomitant]
     Active Substance: ACETAMINOPHEN
     Indication: Product used for unknown indication
     Dosage: UNK
     Route: 065

REACTIONS (9)
  - Atrophic vulvovaginitis [Recovered/Resolved]
  - Joint stiffness [Recovered/Resolved]
  - Atrial thrombosis [Recovered/Resolved]
  - Musculoskeletal stiffness [Recovered/Resolved]
  - Infection [Recovered/Resolved]
  - Diarrhoea [Not Recovered/Not Resolved]
  - Fatigue [Recovered/Resolved]
  - Influenza like illness [Recovered/Resolved]
  - Off label use [Unknown]

NARRATIVE: CASE EVENT DATE: 20160324
